FAERS Safety Report 5541585-1 (Version None)
Quarter: 2007Q4

REPORT INFORMATION
  Report Type: 
  Country: None (occurrence: None)
  Receive Date: 20071210
  Receipt Date: 20071204
  Transmission Date: 20080405
  Serious: Yes (Death, Other)
  Sender: FDA-Public Use
  Company Number: PHHY2007MX00731

PATIENT
  Sex: Male

DRUGS (1)
  1. DIOVAN [Suspect]
     Indication: HYPERTENSION
     Dosage: 1 TABLET (80MG)/DAY
     Route: 048
     Dates: start: 20071001

REACTIONS (3)
  - CARDIAC ARREST [None]
  - DYSPNOEA [None]
  - DYSURIA [None]
